FAERS Safety Report 17267190 (Version 4)
Quarter: 2020Q2

REPORT INFORMATION
  Report Type: Spontaneous
  Country: US (occurrence: US)
  Receive Date: 20200114
  Receipt Date: 20200602
  Transmission Date: 20200713
  Serious: Yes (Other)
  Sender: FDA-Public Use
  Company Number: US-GILEAD-2020-0445953

PATIENT
  Age: 44 Year
  Sex: Male

DRUGS (21)
  1. ATRIPLA [Suspect]
     Active Substance: EFAVIRENZ\EMTRICITABINE\TENOFOVIR DISOPROXIL FUMARATE
     Indication: HIV INFECTION
     Dosage: 1 DOSAGE FORM (600-200-300 MG), QD
     Route: 048
     Dates: start: 2008, end: 20180909
  2. ATORVASTATIN [Concomitant]
     Active Substance: ATORVASTATIN
  3. PHENAZOPYRIDINE. [Concomitant]
     Active Substance: PHENAZOPYRIDINE
  4. FISH OIL [Concomitant]
     Active Substance: FISH OIL
  5. RED YEAST RICE [Concomitant]
     Active Substance: DIETARY SUPPLEMENT
  6. POLYETHYLENE GLYCOL [Concomitant]
     Active Substance: POLYETHYLENE GLYCOLS
  7. TAMSULOSIN [Concomitant]
     Active Substance: TAMSULOSIN
  8. ASPIRIN [ACETYLSALICYLIC ACID] [Concomitant]
     Active Substance: ASPIRIN
  9. HYDROCHLOROTHIAZIDE. [Concomitant]
     Active Substance: HYDROCHLOROTHIAZIDE
  10. LEVITRA [Concomitant]
     Active Substance: VARDENAFIL HYDROCHLORIDE
  11. KETOROLAC [Concomitant]
     Active Substance: KETOROLAC TROMETHAMINE
  12. CIPROFLOXACIN. [Concomitant]
     Active Substance: CIPROFLOXACIN
  13. ATRIPLA [Suspect]
     Active Substance: EFAVIRENZ\EMTRICITABINE\TENOFOVIR DISOPROXIL FUMARATE
     Indication: ACQUIRED IMMUNODEFICIENCY SYNDROME
     Dosage: UNK
     Route: 065
     Dates: start: 2015, end: 2016
  14. BIKTARVY [Concomitant]
     Active Substance: BICTEGRAVIR SODIUM\EMTRICITABINE\TENOFOVIR ALAFENAMIDE FUMARATE
     Indication: HIV INFECTION
     Dosage: 1 DOSAGE FORM (50-200-25 MG), QD
     Route: 048
     Dates: start: 201809
  15. SILDENAFIL. [Concomitant]
     Active Substance: SILDENAFIL
  16. ONDANSETRON [Concomitant]
     Active Substance: ONDANSETRON
  17. XANAX [Concomitant]
     Active Substance: ALPRAZOLAM
  18. GLYCOLAX [Concomitant]
     Active Substance: POLYETHYLENE GLYCOL 3350
  19. CIALIS [Concomitant]
     Active Substance: TADALAFIL
  20. FENTANYL. [Concomitant]
     Active Substance: FENTANYL
  21. OSELTAMIVIR [Concomitant]
     Active Substance: OSELTAMIVIR

REACTIONS (11)
  - Emotional distress [Not Recovered/Not Resolved]
  - Anhedonia [Not Recovered/Not Resolved]
  - Osteoporosis [Not Recovered/Not Resolved]
  - Pain [Not Recovered/Not Resolved]
  - Anxiety [Not Recovered/Not Resolved]
  - Osteopenia [Not Recovered/Not Resolved]
  - Humerus fracture [Recovered/Resolved]
  - Renal failure [Unknown]
  - Economic problem [Not Recovered/Not Resolved]
  - Bone density decreased [Unknown]
  - Chronic kidney disease [Not Recovered/Not Resolved]

NARRATIVE: CASE EVENT DATE: 20161111
